FAERS Safety Report 4531633-X (Version None)
Quarter: 2004Q4

REPORT INFORMATION
  Report Type: 
  Country: None (occurrence: None)
  Receive Date: 20041217
  Receipt Date: 20041217
  Transmission Date: 20050328
  Serious: Yes (Life-Threatening)
  Sender: FDA-Public Use
  Company Number: None

PATIENT
  Age: 44 Year
  Sex: Male
  Weight: 133.8111 kg

DRUGS (1)
  1. STRATTERA [Suspect]
     Dosage: 60 MG TWICE DAILY ORAL
     Route: 048

REACTIONS (5)
  - ANXIETY [None]
  - COMPULSIONS [None]
  - DEPRESSION [None]
  - EMOTIONAL DISORDER [None]
  - SUICIDAL IDEATION [None]
